FAERS Safety Report 4685294-X (Version None)
Quarter: 2005Q2

REPORT INFORMATION
  Report Type: 
  Country: None (occurrence: None)
  Receive Date: 20050603
  Receipt Date: 20050523
  Transmission Date: 20051028
  Serious: Yes (Hospitalization)
  Sender: FDA-Public Use
  Company Number: 2005079395

PATIENT
  Age: 62 Year
  Sex: Female
  Weight: 67.1 kg

DRUGS (5)
  1. PHENYTOIN [Suspect]
     Indication: CONVULSION
     Dosage: 275 MG (275 MG, 1 IN 1 D); ORAL
     Route: 048
     Dates: start: 20050225, end: 20050429
  2. LEVOTHYROXINE [Concomitant]
  3. TEMAZEPAM [Concomitant]
  4. CO-CODAMOL (CODEINE PHOSPHATE, PARACETAMOL) [Concomitant]
  5. QVAR (BECLOMETASONE DIPROPIONATE) [Concomitant]

REACTIONS (1)
  - ALVEOLITIS ALLERGIC [None]
